FAERS Safety Report 6402671-7 (Version None)
Quarter: 2009Q4

REPORT INFORMATION
  Report Type: 
  Country: None (occurrence: None)
  Receive Date: 20091015
  Receipt Date: 20091007
  Transmission Date: 20100525
  Serious: Yes (Hospitalization)
  Sender: FDA-Public Use
  Company Number: GB-AMGEN-QUU366960

PATIENT
  Sex: Female

DRUGS (5)
  1. NEULASTA [Suspect]
     Indication: CHEMOTHERAPY
     Route: 065
     Dates: start: 20090603
  2. NEUPOGEN [Suspect]
     Indication: CHEMOTHERAPY
     Dates: start: 20090617
  3. ADRIAMYCIN PFS [Concomitant]
     Dates: start: 20090602
  4. CYCLOPHOSPHAMIDE [Concomitant]
     Dates: start: 20090602
  5. TAXOL [Concomitant]
     Dates: start: 20090602

REACTIONS (1)
  - NEUTROPENIA [None]
